FAERS Safety Report 8195401-2 (Version None)
Quarter: 2012Q1

REPORT INFORMATION
  Report Type: 
  Country: None (occurrence: None)
  Receive Date: 20120308
  Receipt Date: 20120302
  Transmission Date: 20120608
  Serious: Yes (Other)
  Sender: FDA-Public Use
  Company Number: PHHY2012FR013791

PATIENT
  Sex: Female
  Weight: 55 kg

DRUGS (3)
  1. FELODIPINE [Concomitant]
  2. CRESTOR [Concomitant]
  3. ZOLEDRONOC ACID [Suspect]
     Dosage: 5 MG, UNK
     Route: 042
     Dates: start: 20111001

REACTIONS (2)
  - VISION BLURRED [None]
  - PAIN [None]
